FAERS Safety Report 8721591 (Version 2)
Quarter: 2012Q4

REPORT INFORMATION
  Report Type: 
  Country: JP (occurrence: JP)
  Receive Date: 20120814
  Receipt Date: 20120911
  Transmission Date: 20130627
  Serious: No
  Sender: FDA-Public Use
  Company Number: JP-BRISTOL-MYERS SQUIBB COMPANY-16846636

PATIENT
  Age: 8 Year
  Sex: Male

DRUGS (9)
  1. AVAPRO [Suspect]
     Indication: HYPERTENSION
     Route: 048
     Dates: start: 20120402, end: 20120805
  2. IMIDAFENACIN [Suspect]
     Indication: HYPERTONIC BLADDER
     Route: 048
     Dates: start: 20120709, end: 20120722
  3. AMLODIN [Concomitant]
     Indication: HYPERTENSION
     Route: 048
     Dates: start: 20120228
  4. BAYASPIRIN [Concomitant]
     Indication: THROMBOSIS PROPHYLAXIS
     Route: 048
     Dates: start: 20120228
  5. FOLIAMIN [Concomitant]
     Indication: ANAEMIA FOLATE DEFICIENCY
     Route: 048
     Dates: start: 20120402
  6. FLUITRAN [Concomitant]
     Indication: HYPERTENSION
     Route: 048
     Dates: start: 20120416
  7. FLIVAS [Concomitant]
     Indication: BENIGN PROSTATIC HYPERPLASIA
     Route: 048
     Dates: start: 20120523
  8. DABIGATRAN ETEXILATE [Concomitant]
     Indication: THROMBOSIS PROPHYLAXIS
     Route: 048
     Dates: start: 20120709
  9. GOSHAJINKIGAN [Concomitant]
     Indication: DYSURIA
     Route: 048
     Dates: start: 20120723, end: 20120805

REACTIONS (1)
  - White blood cell count decreased [Recovering/Resolving]
